FAERS Safety Report 6348992-8 (Version None)
Quarter: 2009Q3

REPORT INFORMATION
  Report Type: 
  Country: None (occurrence: None)
  Receive Date: 20090911
  Receipt Date: 20090904
  Transmission Date: 20100115
  Serious: Yes (Death)
  Sender: FDA-Public Use
  Company Number: SE-BAYER-200930640GPV

PATIENT
  Age: 17 Year
  Sex: Female
  Weight: 67 kg

DRUGS (1)
  1. YAZ [Suspect]
     Indication: CONTRACEPTION
     Route: 048
     Dates: start: 20081101, end: 20090301

REACTIONS (11)
  - ARTHRALGIA [None]
  - CHEST PAIN [None]
  - DIZZINESS [None]
  - DYSPNOEA [None]
  - HEADACHE [None]
  - MALAISE [None]
  - MENSTRUAL DISORDER [None]
  - NAUSEA [None]
  - NECK PAIN [None]
  - PALPITATIONS [None]
  - PULMONARY EMBOLISM [None]
